FAERS Safety Report 15275206 (Version 2)
Quarter: 2018Q3

REPORT INFORMATION
  Report Type: Spontaneous
  Country: GB (occurrence: GB)
  Receive Date: 20180814
  Receipt Date: 20180817
  Transmission Date: 20181010
  Serious: Yes (Hospitalization, Other)
  Sender: FDA-Public Use
  Company Number: GB-ASTELLAS-2018US036079

PATIENT
  Age: 22 Year
  Sex: Female

DRUGS (10)
  1. TACROLIMUS. [Suspect]
     Active Substance: TACROLIMUS
     Indication: LIVER TRANSPLANT
     Dosage: UNK, UNKNOWN FREQ.
     Route: 065
  2. PREDNISOLONE. [Suspect]
     Active Substance: PREDNISOLONE
     Indication: LIVER TRANSPLANT
     Dosage: UNK, ONCE DAILY (TAPERING DOSE)
     Route: 065
  3. AZATHIOPRINE. [Suspect]
     Active Substance: AZATHIOPRINE
     Dosage: UNK UNK, UNKNOWN FREQ. (LOWER DOSE)
     Route: 065
  4. MESALAZINUM [Suspect]
     Active Substance: MESALAMINE
     Route: 065
  5. MESALAZINUM [Suspect]
     Active Substance: MESALAMINE
     Dosage: 2.4 G, ONCE DAILY
     Route: 065
  6. MESALAZINUM [Suspect]
     Active Substance: MESALAMINE
     Dosage: 2.4 G, TWICE DAILY
     Route: 065
  7. AZATHIOPRINE. [Suspect]
     Active Substance: AZATHIOPRINE
     Indication: LIVER TRANSPLANT
     Dosage: UNK UNK, UNKNOWN FREQ.
     Route: 065
  8. MESALAZINUM [Suspect]
     Active Substance: MESALAMINE
     Indication: CHOLANGITIS SCLEROSING
     Route: 065
  9. PREDNISOLONE. [Suspect]
     Active Substance: PREDNISOLONE
     Route: 065
  10. PREDNISOLONE. [Suspect]
     Active Substance: PREDNISOLONE
     Route: 065

REACTIONS (5)
  - Inflammatory bowel disease [Recovered/Resolved]
  - Cytomegalovirus viraemia [Unknown]
  - Iron deficiency anaemia [Unknown]
  - Neutropenia [Unknown]
  - Treatment failure [Recovered/Resolved]
